FAERS Safety Report 18645076 (Version 1)
Quarter: 2020Q4

REPORT INFORMATION
  Report Type: Spontaneous
  Country: DE (occurrence: DE)
  Receive Date: 20201221
  Receipt Date: 20201221
  Transmission Date: 20210114
  Serious: Yes (Death, Hospitalization, Other)
  Sender: FDA-Public Use
  Company Number: DE-DSJP-DSE-2020-139220

PATIENT
  Age: 66 Year
  Sex: Female

DRUGS (1)
  1. LIXIANA [Suspect]
     Active Substance: EDOXABAN TOSYLATE
     Indication: PRODUCT USED FOR UNKNOWN INDICATION
     Dosage: UNK

REACTIONS (2)
  - Cerebral haemorrhage [Fatal]
  - Pupils unequal [Unknown]

NARRATIVE: CASE EVENT DATE: 202011
